FAERS Safety Report 7246820-X (Version None)
Quarter: 2011Q1

REPORT INFORMATION
  Report Type: 
  Country: None (occurrence: None)
  Receive Date: 20110127
  Receipt Date: 20110124
  Transmission Date: 20110831
  Serious: Yes (Other)
  Sender: FDA-Public Use
  Company Number: NL-PFIZER INC-2011010809

PATIENT
  Age: 62 Year
  Sex: Female

DRUGS (6)
  1. VISCOTIOL [Concomitant]
  2. ASCAL [Concomitant]
  3. SIMVASTATIN [Concomitant]
  4. PARACETAMOL [Concomitant]
  5. CHAMPIX [Suspect]
     Indication: SMOKING CESSATION THERAPY
     Dosage: UNK
     Dates: start: 20100101, end: 20100101
  6. NEBIVOLOL [Concomitant]

REACTIONS (8)
  - ABNORMAL DREAMS [None]
  - STRESS [None]
  - LOWER LIMB FRACTURE [None]
  - ASTHENIA [None]
  - NERVOUSNESS [None]
  - WEIGHT INCREASED [None]
  - POOR QUALITY SLEEP [None]
  - ABDOMINAL DISTENSION [None]
